FAERS Safety Report 8179509-3 (Version None)
Quarter: 2012Q1

REPORT INFORMATION
  Report Type: 
  Country: None (occurrence: None)
  Receive Date: 20120302
  Receipt Date: 20120222
  Transmission Date: 20120608
  Serious: Yes (Hospitalization, Other)
  Sender: FDA-Public Use
  Company Number: US-BAYER-2011-088227

PATIENT
  Age: 41 Year
  Sex: Female
  Weight: 50 kg

DRUGS (9)
  1. MULTI-VITAMIN [Concomitant]
     Dosage: UNK UNK, QD
     Dates: start: 20091021
  2. LORAZEPAM [Concomitant]
     Dosage: 0.5 MG, UNK
     Route: 048
     Dates: start: 20091021
  3. YASMIN [Suspect]
     Indication: CONTRACEPTION
     Dosage: UNK
     Dates: start: 20070101
  4. DEXAMETHASONE [Concomitant]
     Indication: CHEMOTHERAPY
     Dosage: UNK
     Dates: start: 20090101
  5. ONDANSETRON [Concomitant]
     Indication: CHEMOTHERAPY
     Dosage: UNK
     Dates: start: 20090101
  6. DROSPIRENONE AND ETHINYL ESTRADIOL [Suspect]
     Indication: CONTRACEPTION
     Dosage: UNK
     Dates: start: 20080601, end: 20090101
  7. MICROGESTIN FE 1.5/30 [Concomitant]
     Dosage: UNK
     Dates: start: 20091001, end: 20100101
  8. EMEND [Concomitant]
     Indication: CHEMOTHERAPY
     Dosage: UNK
     Dates: start: 20090101
  9. OXYCODONE HCL AND ACETAMINOPHEN [Concomitant]
     Indication: PAIN
     Dosage: UNK
     Dates: start: 20090101

REACTIONS (5)
  - PULMONARY EMBOLISM [None]
  - INJURY [None]
  - PAIN [None]
  - GALLBLADDER NON-FUNCTIONING [None]
  - CHOLELITHIASIS [None]
